FAERS Safety Report 8012183-5 (Version None)
Quarter: 2011Q4

REPORT INFORMATION
  Report Type: 
  Country: None (occurrence: None)
  Receive Date: 20111228
  Receipt Date: 20111219
  Transmission Date: 20120403
  Serious: Yes (Hospitalization, Other)
  Sender: FDA-Public Use
  Company Number: US-ASTRAZENECA-2011SE77975

PATIENT
  Age: 63 Year
  Sex: Female
  Weight: 57.2 kg

DRUGS (13)
  1. ATENOLOL [Suspect]
     Route: 065
  2. ATACAND [Suspect]
     Route: 048
  3. RAMIPRIL [Concomitant]
     Route: 048
  4. DILTIAZEM HCL [Concomitant]
     Route: 048
  5. PERCOCET [Concomitant]
     Indication: PAIN
     Dosage: 5/325,ONE EVERY FOUR HOURS AS NEEDED
     Route: 048
  6. DOCUSATE [Concomitant]
     Route: 048
  7. RISPERDAL [Concomitant]
  8. SYMBICORT [Suspect]
     Indication: CHRONIC OBSTRUCTIVE PULMONARY DISEASE
     Dosage: 160/4.5, 1 PUFF TWO TIMES A DAY
     Route: 055
  9. PANTOPRAZOLE [Concomitant]
     Route: 048
  10. VENTOLIN HFA [Concomitant]
     Dosage: METER DOSE INHALER TWO PUFFS EVERY FOUR TO SIX HOURS AS NEEDED
     Route: 055
  11. ATROVENT [Concomitant]
     Dosage: 18 MCG PER ACTUATION TWO PUFFS FOUR TIMES A DAY
  12. CALCIUM ACETATE [Concomitant]
     Dosage: DAILY
     Route: 048
  13. LORAZEPAM [Concomitant]
     Indication: ANXIETY
     Dosage: 1 EVERY 6 TO 8 HOURS AS NEEDED
     Route: 048

REACTIONS (32)
  - DRUG HYPERSENSITIVITY [None]
  - BARRETT'S OESOPHAGUS [None]
  - WHEEZING [None]
  - INSOMNIA [None]
  - PRESBYOESOPHAGUS [None]
  - OEDEMA [None]
  - OSTEOPOROSIS POSTMENOPAUSAL [None]
  - BUNDLE BRANCH BLOCK LEFT [None]
  - WEIGHT INCREASED [None]
  - CATARACT [None]
  - HAEMOPTYSIS [None]
  - PHARYNGEAL OEDEMA [None]
  - BACK PAIN [None]
  - IRRITABLE BOWEL SYNDROME [None]
  - BREAST CYST [None]
  - CHEST PAIN [None]
  - CHEST DISCOMFORT [None]
  - HAEMATEMESIS [None]
  - TINNITUS [None]
  - OEDEMA PERIPHERAL [None]
  - HIATUS HERNIA [None]
  - CONSTIPATION [None]
  - VISUAL IMPAIRMENT [None]
  - THORACIC VERTEBRAL FRACTURE [None]
  - TEMPERATURE INTOLERANCE [None]
  - SKIN DISCOLOURATION [None]
  - SPUTUM DISCOLOURED [None]
  - COUGH [None]
  - CHRONIC OBSTRUCTIVE PULMONARY DISEASE [None]
  - LUMBAR VERTEBRAL FRACTURE [None]
  - MACULAR DEGENERATION [None]
  - SEXUAL DYSFUNCTION [None]
